FAERS Safety Report 11351757 (Version 1)
Quarter: 2015Q3

REPORT INFORMATION
  Report Type: Spontaneous
  Country: US (occurrence: US)
  Receive Date: 20150807
  Receipt Date: 20150807
  Transmission Date: 20151125
  Serious: No
  Sender: FDA-Public Use
  Company Number: US-JNJFOC-20150700167

PATIENT
  Age: 65 Year
  Sex: Female
  Weight: 81.65 kg

DRUGS (2)
  1. WOMENS ROGAINE [Suspect]
     Active Substance: MINOXIDIL
     Indication: ALOPECIA
     Dosage: LITTLE MORE THAN A RECOMMENDED DOSAGE, ONCE A DAY, SOMETIMES NONE.
     Route: 061
     Dates: end: 20150624
  2. WOMENS ROGAINE [Suspect]
     Active Substance: MINOXIDIL
     Indication: ALOPECIA
     Dosage: LITTLE MORE THAN A RECOMMENDED DOSAGE, ONCE A DAY, SOMETIMES NONE.
     Route: 061
     Dates: end: 20150624

REACTIONS (3)
  - Incorrect dose administered [Unknown]
  - Hair texture abnormal [Unknown]
  - Inappropriate schedule of drug administration [Unknown]
